FAERS Safety Report 6640124-1 (Version None)
Quarter: 2010Q1

REPORT INFORMATION
  Report Type: 
  Country: None (occurrence: None)
  Receive Date: 20100318
  Receipt Date: 20100308
  Transmission Date: 20100710
  Serious: Yes (Life-Threatening, Hospitalization, Disabling, Other)
  Sender: FDA-Public Use
  Company Number: US-ELI_LILLY_AND_COMPANY-US200911004811

PATIENT
  Sex: Male
  Weight: 122.45 kg

DRUGS (12)
  1. ZYPREXA [Suspect]
     Dosage: 5 MG, DAILY (1/D)
     Dates: start: 19950101, end: 20080101
  2. ZYPREXA [Suspect]
     Dosage: 15 MG, UNK
  3. ZYPREXA [Suspect]
     Dosage: 20 MG, DAILY (1/D)
     Dates: start: 20080401, end: 20080101
  4. HALOPERIDOL [Concomitant]
     Dosage: 5 MG, UNK
  5. HALOPERIDOL [Concomitant]
     Dosage: 10 MG, UNK
  6. BENZTROPINE MESYLATE [Concomitant]
     Dosage: 1 MG, UNK
  7. BENZTROPINE MESYLATE [Concomitant]
     Dosage: 2 MG, UNK
  8. MIRTAZAPINE [Concomitant]
     Dosage: 30 MG, UNK
  9. GEODON [Concomitant]
     Dosage: 60 MG, UNK
  10. GEODON [Concomitant]
     Dosage: 80 MG, UNK
  11. HALOPERIDOL DECANOATE [Concomitant]
     Dosage: 1 D/F, UNK
     Route: 030
  12. CATAPRES /00171101/ [Concomitant]
     Dosage: 0.3 MG, WEEKLY (1/W)
     Route: 062

REACTIONS (10)
  - ANAEMIA [None]
  - BLOOD GLUCOSE INCREASED [None]
  - BLOOD HYPOSMOSIS [None]
  - DIABETES MELLITUS [None]
  - LEUKOPENIA [None]
  - PNEUMONIA [None]
  - RENAL FAILURE ACUTE [None]
  - RESPIRATORY FAILURE [None]
  - VISION BLURRED [None]
  - WEIGHT INCREASED [None]
